FAERS Safety Report 4932760-5 (Version None)
Quarter: 2006Q1

REPORT INFORMATION
  Report Type: 
  Country: None (occurrence: None)
  Receive Date: 20060302
  Receipt Date: 20060302
  Transmission Date: 20060701
  Serious: Yes (Other)
  Sender: FDA-Public Use
  Company Number: None

PATIENT
  Age: 67 Year
  Sex: Female
  Weight: 56.246 kg

DRUGS (7)
  1. GABAPENTIN [Suspect]
     Indication: PAIN
     Dosage: 100 MG 2 PO QHS
     Route: 048
     Dates: start: 20050101, end: 20050301
  2. DIAZEPAM [Concomitant]
  3. TRAMADOL HCL [Concomitant]
  4. SYNTHROID [Concomitant]
  5. RANITIDINE [Concomitant]
  6. TRAZADONE [Concomitant]
  7. IMITREX [Concomitant]

REACTIONS (3)
  - PHARMACEUTICAL PRODUCT COMPLAINT [None]
  - THERAPEUTIC RESPONSE UNEXPECTED WITH DRUG SUBSTITUTION [None]
  - VERTIGO [None]
